FAERS Safety Report 8509379-2 (Version None)
Quarter: 2012Q3

REPORT INFORMATION
  Report Type: 
  Country: None (occurrence: None)
  Receive Date: 20120713
  Receipt Date: 20120705
  Transmission Date: 20120928
  Serious: No
  Sender: FDA-Public Use
  Company Number: JP-ASTRAZENECA-2012SE38191

PATIENT
  Age: 56 Year
  Sex: Male
  Weight: 103 kg

DRUGS (7)
  1. CRESTOR [Suspect]
     Indication: DYSLIPIDAEMIA
     Route: 048
     Dates: start: 20101201, end: 20120526
  2. LANSOPRAZOLE [Concomitant]
     Indication: GASTROOESOPHAGEAL REFLUX DISEASE
     Route: 048
     Dates: start: 20101201
  3. CARVEDILOL [Concomitant]
     Indication: CARDIAC FAILURE CONGESTIVE
     Route: 048
     Dates: start: 20101201
  4. OLMESARTAN MEDOXOMIL [Concomitant]
     Indication: CARDIAC FAILURE CONGESTIVE
     Route: 048
     Dates: start: 20101201
  5. WARFARIN SODIUM [Concomitant]
     Indication: ATRIAL FIBRILLATION
     Route: 048
     Dates: start: 20101201
  6. LYRICA [Concomitant]
     Indication: NEURALGIA
     Route: 065
  7. CLONAZEPAM [Concomitant]
     Indication: CEREBRAL INFARCTION
     Route: 048
     Dates: start: 20101201

REACTIONS (1)
  - BLOOD CREATINE PHOSPHOKINASE INCREASED [None]
